FAERS Safety Report 8519159-X (Version None)
Quarter: 2012Q3

REPORT INFORMATION
  Report Type: 
  Country: None (occurrence: None)
  Receive Date: 20120718
  Receipt Date: 20120709
  Transmission Date: 20120928
  Serious: Yes (Hospitalization, Other)
  Sender: FDA-Public Use
  Company Number: US-AMGEN-USASP2011015925

PATIENT

DRUGS (2)
  1. SENSIPAR [Suspect]
     Indication: HYPERPARATHYROIDISM PRIMARY
     Dosage: 60 MG, BID
  2. SENSIPAR [Suspect]
     Dosage: 90 MG, QD

REACTIONS (7)
  - HYPOCALCAEMIA [None]
  - GENERAL PHYSICAL HEALTH DETERIORATION [None]
  - OSTEOPOROSIS [None]
  - FEELING ABNORMAL [None]
  - BONE DENSITY DECREASED [None]
  - NAUSEA [None]
  - VOMITING [None]
